FAERS Safety Report 8811733 (Version 1)
Quarter: 2012Q4

REPORT INFORMATION
  Report Type: Spontaneous
  Country: US (occurrence: None)
  Receive Date: 20120925
  Receipt Date: 20120925
  Transmission Date: 20130627
  Serious: Yes (Hospitalization, Other)
  Sender: FDA-Public Use
  Company Number: None

PATIENT
  Age: 61 Year
  Sex: Female
  Weight: 67.13 kg

DRUGS (1)
  1. CYMBALTA [Suspect]
     Dosage: 20mg cal, qd, po
     Route: 048
     Dates: start: 20120201, end: 20120710

REACTIONS (28)
  - Oedema peripheral [None]
  - Heart rate increased [None]
  - Dyspnoea [None]
  - Muscular weakness [None]
  - Arthralgia [None]
  - Joint stiffness [None]
  - Coordination abnormal [None]
  - Oedema peripheral [None]
  - Localised oedema [None]
  - Balance disorder [None]
  - Headache [None]
  - Pain in extremity [None]
  - Hyperhidrosis [None]
  - Hot flush [None]
  - Chills [None]
  - Fatigue [None]
  - Muscle spasms [None]
  - Vision blurred [None]
  - Abnormal dreams [None]
  - Memory impairment [None]
  - Confusional state [None]
  - Abdominal distension [None]
  - Night sweats [None]
  - Dry mouth [None]
  - Mood altered [None]
  - Anger [None]
  - Flushing [None]
  - Insomnia [None]
